FAERS Safety Report 6656186-1 (Version None)
Quarter: 2010Q1

REPORT INFORMATION
  Report Type: 
  Country: None (occurrence: None)
  Receive Date: 20100329
  Receipt Date: 20080318
  Transmission Date: 20100710
  Serious: Yes (Hospitalization)
  Sender: FDA-Public Use
  Company Number: US-SANOFI-AVENTIS-F01200601899

PATIENT
  Age: 60 Year
  Sex: Female
  Weight: 80.3 kg

DRUGS (11)
  1. OXALIPLATIN [Suspect]
     Indication: OVARIAN CANCER
     Dosage: UNIT DOSE: 85 MG/M2
     Route: 041
     Dates: start: 20060818, end: 20060818
  2. OXALIPLATIN [Suspect]
     Route: 041
     Dates: start: 20060505, end: 20060505
  3. DOCETAXEL [Suspect]
     Indication: OVARIAN CANCER
     Dosage: UNIT DOSE: 75 MG/M2
     Route: 041
     Dates: start: 20060818, end: 20060818
  4. DOCETAXEL [Suspect]
     Route: 041
     Dates: start: 20060505, end: 20060505
  5. BEVACIZUMAB [Suspect]
     Indication: OVARIAN CANCER
     Dosage: UNIT DOSE: 15 MG/KG
     Route: 041
     Dates: start: 20060818, end: 20060818
  6. BEVACIZUMAB [Suspect]
     Route: 041
     Dates: start: 20060505, end: 20060505
  7. GLYBURIDE [Concomitant]
  8. CAPTOPRIL [Concomitant]
  9. LOVENOX [Concomitant]
  10. REGLAN /YUG/ [Concomitant]
  11. OXYCODONE [Concomitant]
     Dosage: DOSE TEXT: 5/3.25 MG
     Route: 065

REACTIONS (1)
  - HYPOGLYCAEMIA [None]
